FAERS Safety Report 20719069 (Version 2)
Quarter: 2022Q2

REPORT INFORMATION
  Report Type: Report from Study
  Country: US (occurrence: US)
  Receive Date: 20220418
  Receipt Date: 20220529
  Transmission Date: 20220721
  Serious: Yes (Hospitalization)
  Sender: FDA-Public Use
  Company Number: US-BRISTOL-MYERS SQUIBB COMPANY-2022-017773

PATIENT
  Age: 72 Year
  Sex: Female
  Weight: 123.83 kg

DRUGS (11)
  1. POMALYST [Suspect]
     Active Substance: POMALIDOMIDE
     Indication: Plasma cell myeloma
     Dosage: DAILY FOR 21 DAYS OUT OF 28 DAYS
     Route: 048
     Dates: start: 202105, end: 2021
  2. POMALYST [Suspect]
     Active Substance: POMALIDOMIDE
     Indication: Anaemia
     Route: 048
     Dates: start: 202201
  3. POMALYST [Suspect]
     Active Substance: POMALIDOMIDE
     Indication: Deficiency anaemia
  4. POMALYST [Suspect]
     Active Substance: POMALIDOMIDE
     Indication: Essential hypertension
  5. LISINOPRIL [Concomitant]
     Active Substance: LISINOPRIL
  6. AMLODIPINE BESYLATE [Concomitant]
     Active Substance: AMLODIPINE BESYLATE
  7. METOPROLOL TARTRATE [Concomitant]
     Active Substance: METOPROLOL TARTRATE
  8. JARDIANCE [Concomitant]
     Active Substance: EMPAGLIFLOZIN
  9. ROSUVASTATIN [Concomitant]
     Active Substance: ROSUVASTATIN
  10. ROSUVASTATIN [Concomitant]
     Active Substance: ROSUVASTATIN
  11. ASPIRIN [Concomitant]
     Active Substance: ASPIRIN

REACTIONS (3)
  - Wound [Unknown]
  - Back pain [Not Recovered/Not Resolved]
  - Abdominal pain [Not Recovered/Not Resolved]
